FAERS Safety Report 5673543-0 (Version None)
Quarter: 2008Q1

REPORT INFORMATION
  Report Type: 
  Country: None (occurrence: None)
  Receive Date: 20080319
  Receipt Date: 20080312
  Transmission Date: 20080703
  Serious: No
  Sender: FDA-Public Use
  Company Number: US-BOEHRINGER INGELHEIM GMBH, GERMANY-2008-BP-03845BP

PATIENT
  Age: 70 Year
  Sex: Male

DRUGS (2)
  1. FLOMAX [Suspect]
     Indication: BENIGN PROSTATIC HYPERPLASIA
     Route: 048
     Dates: start: 20070601
  2. COLACE [Concomitant]
     Indication: CONSTIPATION

REACTIONS (4)
  - CONSTIPATION [None]
  - HYPOTENSION [None]
  - MIDDLE INSOMNIA [None]
  - SOMNOLENCE [None]
